FAERS Safety Report 23423320 (Version 1)
Quarter: 2024Q1

REPORT INFORMATION
  Report Type: Spontaneous
  Country: US (occurrence: None)
  Receive Date: 20240119
  Receipt Date: 20240119
  Transmission Date: 20240409
  Serious: Yes (Disabling)
  Sender: FDA-Public Use
  Company Number: None

PATIENT
  Age: 22 Year
  Sex: Female
  Weight: 98.55 kg

DRUGS (7)
  1. SINGULAIR [Suspect]
     Active Substance: MONTELUKAST SODIUM
     Indication: Asthma
     Dosage: OTHER QUANTITY : 1 TABLET(S);?FREQUENCY : DAILY;?
     Route: 048
     Dates: start: 20130909, end: 20170526
  2. NORGESTIMATE [Concomitant]
     Active Substance: NORGESTIMATE
  3. VILAZODONE [Concomitant]
     Active Substance: VILAZODONE
  4. MAGNESIUM CITRATE [Concomitant]
     Active Substance: MAGNESIUM CITRATE
  5. immune support multivitamin [Concomitant]
  6. elderberry extract [Concomitant]
  7. women^s probiotic [Concomitant]

REACTIONS (4)
  - Depression [None]
  - Aggression [None]
  - Suicide attempt [None]
  - Asthma [None]

NARRATIVE: CASE EVENT DATE: 20180423
